FAERS Safety Report 8786274 (Version 1)
Quarter: 2012Q4

REPORT INFORMATION
  Report Type: 
  Country: US (occurrence: US)
  Receive Date: 20120914
  Receipt Date: 20120914
  Transmission Date: 20130627
  Serious: No
  Sender: FDA-Public Use
  Company Number: US-VERTEX PHARMACEUTICAL INC.-AE-2012-011276

PATIENT
  Age: 56 Year
  Sex: Female
  Weight: 72.27 kg

DRUGS (10)
  1. INCIVEK [Suspect]
     Indication: HEPATITIS C
     Route: 048
     Dates: start: 20120719
  2. RIBAVIRIN [Concomitant]
     Indication: HEPATITIS C
     Route: 048
     Dates: start: 20120719
  3. PEGASYS [Concomitant]
     Indication: HEPATITIS C
     Route: 058
     Dates: start: 20120719
  4. DOXEPIN [Concomitant]
     Indication: DEPRESSION
     Route: 048
  5. CITALOPRAM [Concomitant]
     Indication: DEPRESSION
     Route: 048
  6. LYRICA [Concomitant]
     Indication: NEURALGIA
     Route: 048
  7. METOPROLOL [Concomitant]
     Indication: HYPERTENSION
     Route: 048
  8. VESICARE [Concomitant]
     Indication: URINARY INCONTINENCE
     Route: 048
  9. CULTURELLE [Concomitant]
     Route: 048
  10. NITROFURANTOIN [Concomitant]
     Indication: PROPHYLAXIS
     Route: 048

REACTIONS (2)
  - Rash pruritic [Not Recovered/Not Resolved]
  - Nausea [Not Recovered/Not Resolved]
